FAERS Safety Report 9406994 (Version 1)
Quarter: 2013Q3

REPORT INFORMATION
  Report Type: Spontaneous
  Country: US (occurrence: US)
  Receive Date: 20130718
  Receipt Date: 20130718
  Transmission Date: 20140515
  Serious: No
  Sender: FDA-Public Use
  Company Number: US-BAYER-2013-086812

PATIENT
  Age: 72 Year
  Sex: Male
  Weight: 83.9 kg

DRUGS (3)
  1. ALEVE CAPLET [Suspect]
     Indication: ANALGESIC THERAPY
     Dosage: 2 DF, QD
     Route: 048
     Dates: start: 2008
  2. VICODIN [Concomitant]
  3. CENTRUM SILVER [Concomitant]

REACTIONS (3)
  - Drug ineffective [None]
  - Drug ineffective [None]
  - Incorrect drug administration duration [None]
